FAERS Safety Report 19155295 (Version 4)
Quarter: 2021Q2

REPORT INFORMATION
  Report Type: Report from Study
  Country: CA (occurrence: CA)
  Receive Date: 20210419
  Receipt Date: 20210614
  Transmission Date: 20210717
  Serious: Yes (Hospitalization, Other)
  Sender: FDA-Public Use
  Company Number: NVSC2020CA063127

PATIENT
  Age: 17 Year
  Sex: Male
  Weight: 139.6 kg

DRUGS (7)
  1. AFINITOR [Suspect]
     Active Substance: EVEROLIMUS
     Dosage: 5 MG, QD
     Route: 048
     Dates: start: 20210506
  2. AFINITOR [Suspect]
     Active Substance: EVEROLIMUS
     Indication: CENTRAL NERVOUS SYSTEM DERMOID TUMOUR
     Dosage: 5 MG
     Route: 048
     Dates: start: 20200417, end: 20200813
  3. ABILIFY [Concomitant]
     Active Substance: ARIPIPRAZOLE
     Indication: DEPRESSION
     Dosage: 20 MG, QD
     Route: 065
     Dates: start: 20190101
  4. AFINITOR [Suspect]
     Active Substance: EVEROLIMUS
     Dosage: 7.5 MG
     Route: 048
     Dates: start: 20200814
  5. AFINITOR [Suspect]
     Active Substance: EVEROLIMUS
     Dosage: 10 MG, QD
     Route: 048
     Dates: end: 20210329
  6. GABAPENTIN. [Concomitant]
     Active Substance: GABAPENTIN
     Indication: PAIN
     Dosage: 1200 MG, TID
     Route: 065
     Dates: start: 20190130
  7. AFINITOR [Suspect]
     Active Substance: EVEROLIMUS
     Indication: NEUROFIBROMATOSIS
     Dosage: 10 MG, QD
     Route: 048
     Dates: start: 20190718, end: 20200301

REACTIONS (9)
  - Hypertriglyceridaemia [Not Recovered/Not Resolved]
  - Pericarditis [Recovered/Resolved]
  - Central nervous system dermoid tumour [Not Recovered/Not Resolved]
  - Malignant neoplasm progression [Not Recovered/Not Resolved]
  - Erythema [Recovering/Resolving]
  - Fatigue [Unknown]
  - Pneumonia [Recovered/Resolved]
  - Paronychia [Recovering/Resolving]
  - Chest pain [Recovered/Resolved]

NARRATIVE: CASE EVENT DATE: 20200101
